FAERS Safety Report 23570863 (Version 1)
Quarter: 2024Q1

REPORT INFORMATION
  Report Type: Spontaneous
  Country: US (occurrence: US)
  Receive Date: 20240227
  Receipt Date: 20240227
  Transmission Date: 20240409
  Serious: No
  Sender: FDA-Public Use
  Company Number: US-BIOVITRUM-2024-US-003221

PATIENT
  Age: 21 Month
  Sex: Male
  Weight: 9.79 kg

DRUGS (5)
  1. SYNAGIS [Suspect]
     Active Substance: PALIVIZUMAB
     Indication: Premature baby
     Dosage: ONCE A MONTH
     Route: 030
  2. SYNAGIS [Suspect]
     Active Substance: PALIVIZUMAB
     Indication: Otitis media
  3. SYNAGIS [Suspect]
     Active Substance: PALIVIZUMAB
     Indication: Cough
  4. AZITHROMYCIN [Concomitant]
     Active Substance: AZITHROMYCIN
     Indication: Product used for unknown indication
     Dosage: 100% POWDER
  5. OMEPRAZOLE [Concomitant]
     Active Substance: OMEPRAZOLE
     Indication: Product used for unknown indication
     Dosage: 10MG CAPSULE DR

REACTIONS (1)
  - Pyrexia [Unknown]
